FAERS Safety Report 9753103 (Version 1)
Quarter: 2013Q4

REPORT INFORMATION
  Report Type: Spontaneous
  Country: US (occurrence: US)
  Receive Date: 20131213
  Receipt Date: 20131213
  Transmission Date: 20140711
  Serious: No
  Sender: FDA-Public Use
  Company Number: US-GILEAD-2009-0026255

PATIENT
  Age: 84 Year
  Sex: Female
  Weight: 69.85 kg

DRUGS (9)
  1. LETAIRIS [Suspect]
     Indication: PULMONARY ARTERIAL HYPERTENSION
     Route: 048
     Dates: start: 20090827, end: 20091222
  2. COUMADIN [Concomitant]
  3. SINGULAIR [Concomitant]
  4. PROTONIX [Concomitant]
  5. LASIX [Concomitant]
  6. LOVASTATIN [Concomitant]
  7. ADVAIR [Concomitant]
  8. DILTIAZEM [Concomitant]
  9. ASA [Concomitant]

REACTIONS (2)
  - Paraesthesia [Not Recovered/Not Resolved]
  - Local swelling [Recovered/Resolved]
